FAERS Safety Report 5348442-4 (Version None)
Quarter: 2007Q2

REPORT INFORMATION
  Report Type: 
  Country: None (occurrence: None)
  Receive Date: 20070605
  Receipt Date: 20070525
  Transmission Date: 20071010
  Serious: Yes (Death, Disabling, Other)
  Sender: FDA-Public Use
  Company Number: 2006JP004923

PATIENT
  Age: 5 Year
  Sex: Male
  Weight: 25 kg

DRUGS (12)
  1. PROGRAF [Suspect]
     Indication: BONE MARROW TRANSPLANT
     Dosage: 0.5 MG, UID/QD, IV DRIP
     Route: 041
     Dates: start: 20050831, end: 20050909
  2. PROGRAF [Suspect]
     Indication: BONE MARROW TRANSPLANT
     Dosage: SEE IMAGE
     Route: 048
     Dates: start: 20050910, end: 20060110
  3. PROGRAF [Suspect]
     Indication: BONE MARROW TRANSPLANT
     Dosage: SEE IMAGE
     Route: 048
     Dates: start: 20060111, end: 20060420
  4. METHOTREXATE FORMULATION UNKNOWN [Concomitant]
  5. CYCLOPHOSPHAMIDE (CYCLOPHOSPHAMIDE) FORMULATION UNKNOWN [Concomitant]
  6. BUSULFAN (BUSULFAN) FORMULATION UNKNOWN [Concomitant]
  7. FLUDARA (FLUDARABINE PHOSPHATE) FORMULATION UNKNOWN [Concomitant]
  8. MEDROL [Concomitant]
  9. FLUMARIN (FLOMOXEF SODIUM) INJECTION [Concomitant]
  10. PRODIF INJECTION [Concomitant]
  11. PREDNISOLONE [Concomitant]
  12. PREDNISOLONE [Concomitant]

REACTIONS (12)
  - ANAEMIA HAEMOLYTIC AUTOIMMUNE [None]
  - CATHETER RELATED INFECTION [None]
  - CYANOSIS [None]
  - DRUG INEFFECTIVE [None]
  - GASTROINTESTINAL INFECTION [None]
  - LYMPHOPROLIFERATIVE DISORDER [None]
  - OBSTRUCTIVE AIRWAYS DISORDER [None]
  - PANCYTOPENIA [None]
  - SEPSIS [None]
  - STAPHYLOCOCCAL INFECTION [None]
  - STREPTOCOCCAL INFECTION [None]
  - TONSILLAR HYPERTROPHY [None]
